FAERS Safety Report 24569024 (Version 1)
Quarter: 2024Q4

REPORT INFORMATION
  Report Type: Spontaneous
  Country: RS (occurrence: RS)
  Receive Date: 20241031
  Receipt Date: 20241031
  Transmission Date: 20250114
  Serious: Yes (Hospitalization)
  Sender: EXELIXIS
  Company Number: RS-IPSEN Group, Research and Development-2024-21606

PATIENT
  Age: 45 Year
  Sex: Male

DRUGS (6)
  1. COMETRIQ [Suspect]
     Active Substance: CABOZANTINIB S-MALATE
     Indication: Medullary thyroid cancer
     Dosage: 140 MG
     Route: 065
  2. EUTHYROX [Concomitant]
     Active Substance: LEVOTHYROXINE SODIUM
     Dosage: 1X125MCG FOR FIVE DAYS, 1X150MCG DURING THE WEEKENDS
  3. Vigantol [Concomitant]
     Dosage: UNK, Q WEEKLY (15 DROPS ONCE PER WEEK)
  4. FOSTER [Concomitant]
     Active Substance: BECLOMETHASONE\FORMOTEROL
     Dosage: 6/100MCG (2X2 PUFFS),
  5. DUROFILIN [Concomitant]
     Dosage: (2X1 TABL)
  6. FENOTEROL HYDROBROMIDE\IPRATROPIUM BROMIDE [Concomitant]
     Active Substance: FENOTEROL HYDROBROMIDE\IPRATROPIUM BROMIDE
     Dosage: AS NEEDED

REACTIONS (6)
  - Pain in jaw [Unknown]
  - Tumour pain [Unknown]
  - Hyperhidrosis [Unknown]
  - Respiratory rate increased [Unknown]
  - Haemoptysis [Unknown]
  - Fatigue [Unknown]
